FAERS Safety Report 13697015 (Version 1)
Quarter: 2017Q2

REPORT INFORMATION
  Report Type: Spontaneous
  Country: US (occurrence: US)
  Receive Date: 20170627
  Receipt Date: 20170627
  Transmission Date: 20170830
  Serious: Yes (Other)
  Sender: FDA-Public Use
  Company Number: None

PATIENT
  Age: 53 Year
  Sex: Female
  Weight: 94.5 kg

DRUGS (3)
  1. SUPREP BOWEL PREP [Suspect]
     Active Substance: MAGNESIUM SULFATE\POTASSIUM SULFATE\SODIUM SULFATE
     Indication: BOWEL PREPARATION
     Dosage: ?          OTHER STRENGTH:GM;QUANTITY:1 KIT;OTHER FREQUENCY:TWICE IN ONE DAY;?
     Route: 048
     Dates: start: 20170626, end: 20170626
  2. OMEPRAZOLE. [Concomitant]
     Active Substance: OMEPRAZOLE
  3. SUPREP BOWEL PREP [Suspect]
     Active Substance: MAGNESIUM SULFATE\POTASSIUM SULFATE\SODIUM SULFATE
     Indication: COLONOSCOPY
     Dosage: ?          OTHER STRENGTH:GM;QUANTITY:1 KIT;OTHER FREQUENCY:TWICE IN ONE DAY;?
     Route: 048
     Dates: start: 20170626, end: 20170626

REACTIONS (8)
  - Asthenia [None]
  - Dysgeusia [None]
  - Headache [None]
  - Vomiting [None]
  - Migraine [None]
  - Dry skin [None]
  - Dizziness [None]
  - Nausea [None]

NARRATIVE: CASE EVENT DATE: 20170626
